FAERS Safety Report 23079243 (Version 3)
Quarter: 2023Q4

REPORT INFORMATION
  Report Type: Other
  Country: CA (occurrence: None)
  Receive Date: 20231018
  Receipt Date: 20231108
  Transmission Date: 20240109
  Serious: Yes (Other)
  Sender: FDA-Public Use
  Company Number: CA-ROCHE-3439752

PATIENT
  Age: 33 Year
  Sex: Female

DRUGS (3)
  1. OCREVUS [Suspect]
     Active Substance: OCRELIZUMAB
     Indication: Relapsing-remitting multiple sclerosis
     Dosage: MORE DOSAGE INFORMATION IS 300 MG AT DAY 0 AND 14, THEN 600 MG EVERY 6 MONTHS
     Route: 042
     Dates: start: 20200407
  2. MODERNA COVID-19 VACCINE [Suspect]
     Active Substance: ELASOMERAN
     Indication: Product used for unknown indication
     Route: 065
  3. TYLENOL COLD AND FLU DAYTIME [Concomitant]

REACTIONS (6)
  - Paralysis [Recovered/Resolved]
  - Productive cough [Recovering/Resolving]
  - Fall [Unknown]
  - Asthenia [Unknown]
  - Influenza [Unknown]
  - Poor venous access [Unknown]

NARRATIVE: CASE EVENT DATE: 20231016
